FAERS Safety Report 24645340 (Version 1)
Quarter: 2024Q4

REPORT INFORMATION
  Report Type: Report from Study
  Country: US (occurrence: US)
  Receive Date: 20241121
  Receipt Date: 20241121
  Transmission Date: 20250115
  Serious: No
  Sender: SANDOZ
  Company Number: US-SANDOZ-SDZ2024US095725

PATIENT
  Sex: Male

DRUGS (2)
  1. OMNITROPE [Suspect]
     Active Substance: SOMATROPIN
     Indication: Short stature
     Dosage: 2.8 MG, QD (10 MG / 1.5 ML SOLUTION FOR INJECTION)
     Route: 058
  2. OMNITROPE [Suspect]
     Active Substance: SOMATROPIN
     Indication: Short stature
     Dosage: 2.8 MG, QD (10 MG / 1.5 ML SOLUTION FOR INJECTION)
     Route: 058

REACTIONS (5)
  - Pain [Recovering/Resolving]
  - Fatigue [Recovering/Resolving]
  - Headache [Recovering/Resolving]
  - Circumstance or information capable of leading to medication error [Unknown]
  - Device leakage [Unknown]
